FAERS Safety Report 7806009-X (Version None)
Quarter: 2011Q4

REPORT INFORMATION
  Report Type: 
  Country: None (occurrence: None)
  Receive Date: 20111011
  Receipt Date: 20111006
  Transmission Date: 20120403
  Serious: Yes (Death, Other)
  Sender: FDA-Public Use
  Company Number: PHHY2011BR80303

PATIENT
  Sex: Male

DRUGS (5)
  1. ACEBROFYLLINE [Concomitant]
     Indication: PRODUCTIVE COUGH
  2. AEROFLUX [Concomitant]
     Indication: PRODUCTIVE COUGH
  3. CAPTOPRIL [Concomitant]
     Indication: HYPERTENSION
  4. FORMOTEROL FUMARATE [Suspect]
     Indication: EMPHYSEMA
     Dosage: 1 CAPSULE OF EACH TREATMENT TWICE DAILY
  5. FLUIMUCIL [Concomitant]
     Indication: PRODUCTIVE COUGH

REACTIONS (4)
  - SALIVARY GLAND CANCER [None]
  - CANCER PAIN [None]
  - ASTHENIA [None]
  - DEPRESSION [None]
